FAERS Safety Report 7307303-1 (Version None)
Quarter: 2011Q1

REPORT INFORMATION
  Report Type: 
  Country: None (occurrence: None)
  Receive Date: 20110223
  Receipt Date: 20110216
  Transmission Date: 20110831
  Serious: Yes (Hospitalization)
  Sender: FDA-Public Use
  Company Number: US-ASTELLAS-2011US000691

PATIENT
  Sex: Male
  Weight: 85 kg

DRUGS (5)
  1. PREDNISONE [Concomitant]
     Indication: PRODUCT USED FOR UNKNOWN INDICATION
     Dosage: 20 MG, TID
     Route: 048
  2. PROGRAF [Suspect]
     Indication: NEPHROTIC SYNDROME
     Dosage: 4 MG, BID
     Route: 048
     Dates: start: 20071214
  3. LASIX [Concomitant]
     Indication: OEDEMA
     Dosage: 20 MG, UID/QD
     Route: 048
  4. ALDACTONE [Concomitant]
     Indication: OEDEMA
     Dosage: 25 MG, UID/QD
     Route: 048
  5. COUMADIN [Concomitant]
     Indication: COAGULOPATHY
     Dosage: 2 MG, UID/QD
     Route: 048

REACTIONS (4)
  - OFF LABEL USE [None]
  - BLOOD SODIUM DECREASED [None]
  - NEPHROTIC SYNDROME [None]
  - ELECTROLYTE IMBALANCE [None]
